FAERS Safety Report 7480453-5 (Version None)
Quarter: 2011Q2

REPORT INFORMATION
  Report Type: 
  Country: None (occurrence: None)
  Receive Date: 20110516
  Receipt Date: 20110503
  Transmission Date: 20111010
  Serious: Yes (Hospitalization, Other)
  Sender: FDA-Public Use
  Company Number: ES-ELI_LILLY_AND_COMPANY-ES201105000763

PATIENT
  Sex: Female
  Weight: 65 kg

DRUGS (5)
  1. FORTEO [Suspect]
     Indication: OSTEOPOROSIS
     Dosage: 20 UG, QD
     Route: 058
     Dates: start: 20100112
  2. SINTROM [Concomitant]
     Indication: CARDIOVASCULAR DISORDER
     Dosage: 1 MG, QD
     Route: 048
  3. DAFLON [Concomitant]
     Indication: CARDIOVASCULAR DISORDER
     Dosage: UNK, BID
     Route: 048
  4. ENALAPRIL [Concomitant]
     Indication: HYPERTENSION
     Dosage: UNK, QD
     Route: 048
  5. BENERVA [Concomitant]
     Indication: VITAMIN SUPPLEMENTATION
     Dosage: UNK, QD
     Route: 048

REACTIONS (1)
  - INFARCTION [None]
